FAERS Safety Report 12470479 (Version 1)
Quarter: 2016Q2

REPORT INFORMATION
  Report Type: Spontaneous
  Country: US (occurrence: None)
  Receive Date: 20160614
  Receipt Date: 20160614
  Transmission Date: 20160815
  Serious: No
  Sender: FDA-Public Use
  Company Number: UNT-2016-007534

PATIENT
  Age: 72 Year
  Sex: Male
  Weight: 106.6 kg

DRUGS (5)
  1. NORVASC [Concomitant]
     Active Substance: AMLODIPINE BESYLATE
  2. TYVASO [Suspect]
     Active Substance: TREPROSTINIL
     Dosage: 18-54 MICROGRAMS, QID, INHALATION
     Route: 055
     Dates: start: 20120104
  3. COUMADIN [Concomitant]
     Active Substance: WARFARIN SODIUM
  4. REVATIO [Concomitant]
     Active Substance: SILDENAFIL CITRATE
  5. LETAIRIS [Suspect]
     Active Substance: AMBRISENTAN
     Indication: PRODUCT USED FOR UNKNOWN INDICATION
     Dates: start: 20110826

REACTIONS (4)
  - Device issue [None]
  - Headache [None]
  - Incorrect dose administered by device [None]
  - Chest discomfort [None]
